FAERS Safety Report 5748105-7 (Version None)
Quarter: 2008Q2

REPORT INFORMATION
  Report Type: 
  Country: None (occurrence: None)
  Receive Date: 20080523
  Receipt Date: 20070419
  Transmission Date: 20081010
  Serious: Yes (Other)
  Sender: FDA-Public Use
  Company Number: JP-JNJFOC-20080504887

PATIENT

DRUGS (7)
  1. RISPERIDONE [Suspect]
     Indication: DRUG USE FOR UNKNOWN INDICATION
     Route: 048
  2. RISPERIDONE [Suspect]
     Route: 048
  3. AKINETON [Concomitant]
  4. DEPAKENE [Concomitant]
     Route: 048
  5. VEGETAMIN-B [Concomitant]
     Route: 048
  6. PAXIL [Concomitant]
     Route: 048
  7. LEXOTAN [Concomitant]
     Route: 048

REACTIONS (2)
  - OVERDOSE [None]
  - SUICIDE ATTEMPT [None]
